FAERS Safety Report 21118537 (Version 1)
Quarter: 2022Q3

REPORT INFORMATION
  Report Type: Spontaneous
  Country: CA (occurrence: CA)
  Receive Date: 20220722
  Receipt Date: 20220722
  Transmission Date: 20221027
  Serious: Yes (Other)
  Sender: FDA-Public Use
  Company Number: None

PATIENT
  Sex: Male

DRUGS (3)
  1. TACROLIMUS [Suspect]
     Active Substance: TACROLIMUS
     Indication: Product used for unknown indication
  2. LOSARTAN [Concomitant]
     Active Substance: LOSARTAN
     Indication: Product used for unknown indication
  3. RITUXIMAB [Concomitant]
     Active Substance: RITUXIMAB
     Indication: Glomerulonephritis minimal lesion
     Route: 042

REACTIONS (2)
  - Basal cell carcinoma [Unknown]
  - Squamous cell carcinoma [Unknown]
